FAERS Safety Report 18328327 (Version 2)
Quarter: 2020Q4

REPORT INFORMATION
  Report Type: Spontaneous
  Country: US (occurrence: US)
  Receive Date: 20200930
  Receipt Date: 20201211
  Transmission Date: 20210113
  Serious: Yes (Other)
  Sender: FDA-Public Use
  Company Number: US-ALEXION-A202014222

PATIENT
  Age: 52 Year
  Sex: Female

DRUGS (1)
  1. SOLIRIS [Suspect]
     Active Substance: ECULIZUMAB
     Indication: PAROXYSMAL NOCTURNAL HAEMOGLOBINURIA
     Dosage: 900 MG, Q2W
     Route: 065

REACTIONS (6)
  - Haemoglobin decreased [Unknown]
  - Total complement activity decreased [Unknown]
  - Packed red blood cell transfusion [Unknown]
  - Anaemia [Unknown]
  - Blood bilirubin increased [Unknown]
  - Blood lactate dehydrogenase increased [Unknown]
